FAERS Safety Report 20948012 (Version 1)
Quarter: 2022Q2

REPORT INFORMATION
  Report Type: Spontaneous
  Country: DE (occurrence: DE)
  Receive Date: 20220611
  Receipt Date: 20220611
  Transmission Date: 20220721
  Serious: Yes (Hospitalization, Other)
  Sender: FDA-Public Use
  Company Number: DE-TEVA-2022-DE-2046448

PATIENT
  Age: 32 Year
  Sex: Female

DRUGS (5)
  1. PROGESTERONE [Suspect]
     Active Substance: PROGESTERONE
     Indication: Product used for unknown indication
     Dosage: 400 MILLIGRAM DAILY;
     Route: 065
  2. FOLLITROPIN ALFA [Suspect]
     Active Substance: FOLLITROPIN ALFA
     Indication: Assisted reproductive technology
     Dosage: 150 IU (INTERNATIONAL UNIT) DAILY;
  3. FOLLITROPIN ALFA [Suspect]
     Active Substance: FOLLITROPIN ALFA
     Dosage: 125 IU (INTERNATIONAL UNIT) DAILY;
  4. CHORIOGONADOTROPIN ALFA [Suspect]
     Active Substance: CHORIOGONADOTROPIN ALFA
     Indication: Assisted reproductive technology
     Dosage: 250 MICROGRAM DAILY;
  5. GANIRELIX ACETATE [Suspect]
     Active Substance: GANIRELIX ACETATE
     Indication: Assisted reproductive technology
     Dosage: .25 MILLIGRAM DAILY; 7.-12

REACTIONS (1)
  - Ovarian hyperstimulation syndrome [Recovered/Resolved]

NARRATIVE: CASE EVENT DATE: 20220508
